FAERS Safety Report 10079175 (Version 1)
Quarter: 2014Q2

REPORT INFORMATION
  Report Type: Spontaneous
  Country: US (occurrence: None)
  Receive Date: 20140414
  Receipt Date: 20140414
  Transmission Date: 20141212
  Serious: Yes (Other)
  Sender: FDA-Public Use
  Company Number: None

PATIENT
  Age: 28 Year
  Sex: Female
  Weight: 32.21 kg

DRUGS (4)
  1. EXJADE 500 MG  NOVARTIS [Suspect]
     Indication: PRODUCT USED FOR UNKNOWN INDICATION
     Route: 048
     Dates: start: 20131218, end: 20140411
  2. VITAMIN B12 [Concomitant]
  3. FOLIC ACID [Concomitant]
  4. KEPPRA [Concomitant]

REACTIONS (1)
  - Drug ineffective [None]
